FAERS Safety Report 19690741 (Version 1)
Quarter: 2021Q3

REPORT INFORMATION
  Report Type: Spontaneous
  Country: US (occurrence: US)
  Receive Date: 20210812
  Receipt Date: 20210812
  Transmission Date: 20211014
  Serious: Yes (Other)
  Sender: FDA-Public Use
  Company Number: None

PATIENT
  Age: 75 Year
  Sex: Female
  Weight: 61.2 kg

DRUGS (9)
  1. DEXAMETHASONE 6MG [Concomitant]
     Dates: start: 20210808
  2. FUROSEMIDE 20MG [Concomitant]
     Active Substance: FUROSEMIDE
     Dates: start: 20210808
  3. REMDESIVIR. [Suspect]
     Active Substance: REMDESIVIR
     Indication: COVID-19 PNEUMONIA
     Route: 041
  4. DILTIAZEM ER 180 MG CAPSULE [Concomitant]
     Dates: start: 20210808
  5. XARELTO [Concomitant]
     Active Substance: RIVAROXABAN
     Dates: start: 20210808
  6. VITAMIN C 1000 MG [Concomitant]
     Dates: start: 20210808
  7. VITAMIN D3 2000 UNITS [Concomitant]
     Dates: start: 20210808
  8. PANTOPRAZOLE 40MG [Concomitant]
     Active Substance: PANTOPRAZOLE SODIUM
     Dates: start: 20210808
  9. ZINC 220MG [Concomitant]
     Dates: start: 20210808

REACTIONS (1)
  - Infusion site extravasation [None]

NARRATIVE: CASE EVENT DATE: 20210810
